FAERS Safety Report 7273597-4 (Version None)
Quarter: 2011Q1

REPORT INFORMATION
  Report Type: 
  Country: None (occurrence: None)
  Receive Date: 20110203
  Receipt Date: 20101007
  Transmission Date: 20110831
  Serious: No
  Sender: FDA-Public Use
  Company Number: US-ABBOTT-10P-163-0633959-00

PATIENT
  Sex: Female
  Weight: 53.572 kg

DRUGS (2)
  1. SYNTHROID [Suspect]
     Indication: HYPOTHYROIDISM
     Route: 048
     Dates: start: 20050101, end: 20100301
  2. SYNTHROID [Suspect]
     Route: 048
     Dates: start: 20100301

REACTIONS (2)
  - DIZZINESS [None]
  - HYPERHIDROSIS [None]
